FAERS Safety Report 6796344-9 (Version None)
Quarter: 2010Q2

REPORT INFORMATION
  Report Type: 
  Country: None (occurrence: None)
  Receive Date: 20100622
  Receipt Date: 20100610
  Transmission Date: 20101027
  Serious: Yes (Other)
  Sender: FDA-Public Use
  Company Number: DSM-2010-00771

PATIENT
  Age: 52 Year
  Sex: Male

DRUGS (3)
  1. OMESAR (OLMESARTAN MEDOXOMIL) (TABLET) (OLMESARTAN MEDOXOMIL) [Suspect]
     Indication: HYPERTENSION
     Dosage: 20 MG, ORAL; 40 MG, ORAL
     Route: 048
     Dates: start: 20091113, end: 20100115
  2. OMESAR (OLMESARTAN MEDOXOMIL) (TABLET) (OLMESARTAN MEDOXOMIL) [Suspect]
     Indication: HYPERTENSION
     Dosage: 20 MG, ORAL; 40 MG, ORAL
     Route: 048
     Dates: start: 20100115, end: 20100208
  3. CENTYL K (BENDROFLUMETHIAZIDE, POTASSIUM CHLORIDE) (BENDROFLUMETHIAZID [Concomitant]

REACTIONS (1)
  - NEUTROPENIA [None]
